FAERS Safety Report 5590585-4 (Version None)
Quarter: 2008Q1

REPORT INFORMATION
  Report Type: 
  Country: None (occurrence: None)
  Receive Date: 20080110
  Receipt Date: 20080106
  Transmission Date: 20080703
  Serious: Yes (Death, Hospitalization, Other)
  Sender: FDA-Public Use
  Company Number: 2007US003178

PATIENT
  Age: 54 Year
  Sex: Male

DRUGS (4)
  1. PROGRAF [Suspect]
     Indication: RENAL TRANSPLANT
  2. ANTITHYMOCYTE IMMUNOGLOBULIN (RABBIT) (ANTITHYMOCYTE IMMUNOGLOBULIN (R [Concomitant]
  3. MYCOPHENOLATE MOFETIL [Concomitant]
  4. PREDNISOLONE ACETATE [Concomitant]

REACTIONS (11)
  - BLOOD CREATININE INCREASED [None]
  - CARDIAC ARREST [None]
  - CHORIOMENINGITIS LYMPHOCYTIC [None]
  - COMPLICATIONS OF TRANSPLANTED KIDNEY [None]
  - DIARRHOEA [None]
  - GASTROINTESTINAL TOXICITY [None]
  - GRAFT COMPLICATION [None]
  - HAEMODIALYSIS [None]
  - HYPERKALAEMIA [None]
  - HYPOXIA [None]
  - LETHARGY [None]
